FAERS Safety Report 8802158 (Version 1)
Quarter: 2012Q4

REPORT INFORMATION
  Report Type: 
  Country: US (occurrence: US)
  Receive Date: 20120921
  Receipt Date: 20120921
  Transmission Date: 20130627
  Serious: No
  Sender: FDA-Public Use
  Company Number: US-009507513-1209USA007146

PATIENT
  Sex: Male

DRUGS (4)
  1. DULERA [Suspect]
     Indication: CHRONIC OBSTRUCTIVE PULMONARY DISEASE
     Dosage: 2 DF, bid
     Route: 048
     Dates: start: 20111220, end: 20120725
  2. MICARDIS [Concomitant]
     Dosage: 80 mg, qd
     Dates: start: 20110121
  3. SINGULAIR [Concomitant]
     Indication: CHRONIC OBSTRUCTIVE PULMONARY DISEASE
     Dosage: 10 mg, qd
     Dates: start: 20120408
  4. XOPENEX [Concomitant]
     Indication: CHRONIC OBSTRUCTIVE PULMONARY DISEASE
     Dosage: 45 Microgram, prn
     Dates: start: 20120303

REACTIONS (1)
  - Alopecia areata [Not Recovered/Not Resolved]
